FAERS Safety Report 19047447 (Version 4)
Quarter: 2021Q2

REPORT INFORMATION
  Report Type: Other
  Country: US (occurrence: US)
  Receive Date: 20210323
  Receipt Date: 20210614
  Transmission Date: 20210717
  Serious: Yes (Other)
  Sender: FDA-Public Use
  Company Number: US-ROCHE-2792858

PATIENT
  Age: 53 Year
  Sex: Male
  Weight: 109.41 kg

DRUGS (9)
  1. POTASSIUM [Concomitant]
     Active Substance: POTASSIUM
  2. TAMSULOSIN [Concomitant]
     Active Substance: TAMSULOSIN
  3. IBUPROFEN. [Concomitant]
     Active Substance: IBUPROFEN
  4. ALLOPURINOL. [Concomitant]
     Active Substance: ALLOPURINOL
  5. OCREVUS [Suspect]
     Active Substance: OCRELIZUMAB
     Indication: RELAPSING MULTIPLE SCLEROSIS
     Dosage: ONGOING: NO?16/AUG/2016, 12/JUL/2017, 03/AUG/2017, 15/FEB/2018, 16/AUG/2018, 25/FEB/2019, 23/SEP/201
     Route: 065
     Dates: start: 20170720, end: 202007
  6. ROSUVASTATIN. [Concomitant]
     Active Substance: ROSUVASTATIN
  7. LISINOPRIL. [Concomitant]
     Active Substance: LISINOPRIL
  8. METFORMIN [Concomitant]
     Active Substance: METFORMIN HYDROCHLORIDE
  9. SILDENAFIL. [Concomitant]
     Active Substance: SILDENAFIL

REACTIONS (2)
  - Pneumonia [Unknown]
  - COVID-19 [Recovered/Resolved]

NARRATIVE: CASE EVENT DATE: 202101
